FAERS Safety Report 17116256 (Version 1)
Quarter: 2019Q4

REPORT INFORMATION
  Report Type: Report from Study
  Country: FR (occurrence: FR)
  Receive Date: 20191205
  Receipt Date: 20191205
  Transmission Date: 20200122
  Serious: Yes (Other)
  Sender: FDA-Public Use
  Company Number: FR-MYLANLABS-2019M1118675

PATIENT
  Sex: Male

DRUGS (12)
  1. METHOTREXATE. [Suspect]
     Active Substance: METHOTREXATE
     Indication: CUTANEOUS T-CELL LYMPHOMA
     Dosage: 25 MILLIGRAM, QW
     Dates: start: 201712, end: 201902
  2. DERMOVAL                           /00008501/ [Suspect]
     Active Substance: CLOBETASOL PROPIONATE
     Dosage: 20 GRAM, QW
     Route: 061
  3. METHOTREXATE. [Suspect]
     Active Substance: METHOTREXATE
     Dosage: 20 MILLIGRAM, QW
     Dates: start: 201709, end: 201712
  4. VALCHLOR [Suspect]
     Active Substance: MECHLORETHAMINE
     Dosage: UNK, QOD
     Dates: start: 201712, end: 201811
  5. VALCHLOR [Suspect]
     Active Substance: MECHLORETHAMINE
     Dosage: UNK, QD
     Dates: start: 201811, end: 201905
  6. METHOTREXATE. [Suspect]
     Active Substance: METHOTREXATE
     Dosage: 15 MILLIGRAM, QW
     Dates: start: 20170303, end: 201709
  7. DERMOVAL                           /00008501/ [Suspect]
     Active Substance: CLOBETASOL PROPIONATE
     Dosage: 20 GRAM, 4/WEEK
     Route: 061
     Dates: start: 201712, end: 201905
  8. VALCHLOR [Suspect]
     Active Substance: MECHLORETHAMINE
     Indication: CUTANEOUS T-CELL LYMPHOMA
     Dosage: UNK, QOD
     Dates: start: 201905
  9. DERMOVAL                           /00008501/ [Suspect]
     Active Substance: CLOBETASOL PROPIONATE
     Indication: CUTANEOUS T-CELL LYMPHOMA
     Dosage: UNK
     Route: 061
     Dates: end: 201709
  10. TARGRETIN [Concomitant]
     Active Substance: BEXAROTENE
     Indication: CUTANEOUS T-CELL LYMPHOMA
     Dosage: 300 MILLIGRAM, QD
     Dates: start: 201902
  11. VALCHLOR [Suspect]
     Active Substance: MECHLORETHAMINE
     Dosage: UNK, QW,3/WEEK
     Dates: start: 20170303, end: 201712
  12. DERMOVAL                           /00008501/ [Suspect]
     Active Substance: CLOBETASOL PROPIONATE
     Dosage: 20 GRAM, Q 3DAYS
     Route: 061
     Dates: start: 201905

REACTIONS (3)
  - Malignant neoplasm progression [Recovering/Resolving]
  - Cutaneous T-cell lymphoma [Recovering/Resolving]
  - Therapy partial responder [Unknown]

NARRATIVE: CASE EVENT DATE: 201705
